FAERS Safety Report 5380991-5 (Version None)
Quarter: 2007Q3

REPORT INFORMATION
  Report Type: 
  Country: None (occurrence: None)
  Receive Date: 20070702
  Receipt Date: 20070227
  Transmission Date: 20080115
  Serious: Yes (Hospitalization)
  Sender: FDA-Public Use
  Company Number: SPV1-2006-02323

PATIENT
  Age: 29 Year
  Sex: Male

DRUGS (1)
  1. PENTASA [Suspect]
     Indication: PANCREATITIS ACUTE
     Dosage: 2000 MG DAILY, ORAL
     Route: 048
     Dates: start: 20020601, end: 20030617

REACTIONS (1)
  - PANCREATITIS ACUTE [None]
